FAERS Safety Report 10745479 (Version 1)
Quarter: 2015Q1

REPORT INFORMATION
  Report Type: Spontaneous
  Country: US (occurrence: US)
  Receive Date: 20150128
  Receipt Date: 20150128
  Transmission Date: 20150721
  Serious: No
  Sender: FDA-Public Use
  Company Number: US-BAYER-2015-012480

PATIENT
  Age: 55 Year
  Sex: Male
  Weight: 65.76 kg

DRUGS (1)
  1. ALEVE PM [Suspect]
     Active Substance: DIPHENHYDRAMINE HYDROCHLORIDE\NAPROXEN SODIUM
     Indication: MYALGIA
     Dosage: 2 DF, ONCE
     Route: 048
     Dates: start: 20150124, end: 20150124

REACTIONS (3)
  - Anxiety [Recovered/Resolved]
  - Drug ineffective [None]
  - Palpitations [Recovered/Resolved]

NARRATIVE: CASE EVENT DATE: 20150124
